FAERS Safety Report 7280019-6 (Version None)
Quarter: 2011Q1

REPORT INFORMATION
  Report Type: 
  Country: None (occurrence: None)
  Receive Date: 20110208
  Receipt Date: 20110204
  Transmission Date: 20110831
  Serious: Yes (Hospitalization)
  Sender: FDA-Public Use
  Company Number: CA-AMGEN-CANCT2010002056

PATIENT
  Age: 54 Year
  Sex: Female

DRUGS (14)
  1. METHOTREXATE [Concomitant]
     Dosage: 12.5 MG, Q2WK
     Route: 048
     Dates: start: 20100126, end: 20101004
  2. ACTONEL [Concomitant]
  3. ASAPHEN [Concomitant]
  4. PANTOPRAZOL                        /01263202/ [Concomitant]
  5. PRAMIPEXOLE DIHYDROCHLORIDE [Concomitant]
  6. PREDNISONE [Concomitant]
     Dosage: 5 MG, UNK
     Route: 048
  7. ETANERCEPT [Suspect]
     Indication: RHEUMATOID ARTHRITIS
     Dosage: 50 MG, QWK
     Route: 058
     Dates: start: 20100712, end: 20100906
  8. FOLIC ACID [Concomitant]
  9. CALCITE                            /00108001/ [Concomitant]
  10. SYNTHROID [Concomitant]
  11. LEVETIRACETAM [Concomitant]
  12. DOXAZOSIN MESYLATE [Concomitant]
  13. ATENOLOL [Concomitant]
  14. DOMPERIDONE [Concomitant]

REACTIONS (1)
  - PNEUMONITIS [None]
